FAERS Safety Report 11036583 (Version 1)
Quarter: 2015Q2

REPORT INFORMATION
  Report Type: Spontaneous
  Country: GB (occurrence: GB)
  Receive Date: 20150416
  Receipt Date: 20150416
  Transmission Date: 20150821
  Serious: Yes (Other)
  Sender: FDA-Public Use
  Company Number: GB-JNJFOC-20140701511

PATIENT
  Age: 5 Month
  Sex: Male

DRUGS (2)
  1. CALPOL [Suspect]
     Active Substance: ACETAMINOPHEN
     Route: 065
  2. CALPOL [Suspect]
     Active Substance: ACETAMINOPHEN
     Indication: TEETHING
     Route: 065

REACTIONS (5)
  - Choking [Unknown]
  - Cough [Unknown]
  - Syringe issue [Unknown]
  - Screaming [Unknown]
  - Aspiration [Unknown]
